FAERS Safety Report 10003458 (Version 2)
Quarter: 2014Q1

REPORT INFORMATION
  Report Type: Spontaneous
  Country: US (occurrence: US)
  Receive Date: 20140312
  Receipt Date: 20140312
  Transmission Date: 20141002
  Serious: Yes (Hospitalization)
  Sender: FDA-Public Use
  Company Number: US-GILEAD-2012-0063048

PATIENT
  Sex: Female

DRUGS (4)
  1. LETAIRIS [Suspect]
     Indication: PULMONARY HYPERTENSION
  2. LETAIRIS [Suspect]
     Indication: HAEMODIALYSIS
  3. LETAIRIS [Suspect]
     Indication: ARTERIOVENOUS FISTULA
  4. LETAIRIS [Suspect]
     Indication: COR PULMONALE CHRONIC
     Dosage: 5 MG, QD
     Route: 048
     Dates: start: 20120927

REACTIONS (1)
  - Fluid overload [Unknown]
